FAERS Safety Report 11123096 (Version 1)
Quarter: 2015Q2

REPORT INFORMATION
  Report Type: Spontaneous
  Country: DE (occurrence: DE)
  Receive Date: 20150519
  Receipt Date: 20150519
  Transmission Date: 20150821
  Serious: Yes (Other)
  Sender: FDA-Public Use
  Company Number: GXKR2015DE002451

PATIENT
  Sex: Female

DRUGS (1)
  1. BISOPROLOL 1A PHARMA [Suspect]
     Active Substance: BISOPROLOL
     Indication: PRODUCT USED FOR UNKNOWN INDICATION
     Dosage: 2.5 MG, QD
     Route: 048
     Dates: end: 20150504

REACTIONS (1)
  - Sudden hearing loss [Unknown]
